FAERS Safety Report 9885087 (Version 2)
Quarter: 2014Q1

REPORT INFORMATION
  Report Type: Spontaneous
  Country: JP (occurrence: JP)
  Receive Date: 20140210
  Receipt Date: 20140224
  Transmission Date: 20141002
  Serious: No
  Sender: FDA-Public Use
  Company Number: JP-SA-2014SA013478

PATIENT
  Age: 68 Year
  Sex: Male

DRUGS (4)
  1. DELLEGRA [Suspect]
     Indication: RHINITIS ALLERGIC
     Route: 048
  2. NEXIUM [Concomitant]
  3. GASLON [Concomitant]
     Indication: OTITIS MEDIA
  4. GASLON [Concomitant]
     Indication: RHINITIS ALLERGIC

REACTIONS (1)
  - Dysuria [Unknown]
